FAERS Safety Report 25058761 (Version 1)
Quarter: 2025Q1

REPORT INFORMATION
  Report Type: Report from Study
  Country: US (occurrence: US)
  Receive Date: 20250310
  Receipt Date: 20250310
  Transmission Date: 20250409
  Serious: Yes (Other)
  Sender: BAYER HEALTHCARE PHARMACEUTICALS INC.
  Company Number: US-BAYER-2025A027926

PATIENT
  Age: 77 Year
  Sex: Female

DRUGS (11)
  1. STIVARGA [Suspect]
     Active Substance: REGORAFENIB MONOHYDRATE
     Indication: Cholangiocarcinoma
     Dosage: 120 MG, QD ON DAYS 1 THROUGH 21 OF A 28 DAY CYCLE
     Route: 048
     Dates: start: 20240630
  2. LOMOTIL [Concomitant]
     Active Substance: ATROPINE SULFATE\DIPHENOXYLATE HYDROCHLORIDE
  3. CREON [Concomitant]
     Active Substance: PANCRELIPASE AMYLASE\PANCRELIPASE LIPASE\PANCRELIPASE PROTEASE
  4. LEVOTHYROXINE SODIUM [Concomitant]
     Active Substance: LEVOTHYROXINE SODIUM
  5. CETIRIZINE HYDROCHLORIDE [Concomitant]
     Active Substance: CETIRIZINE HYDROCHLORIDE
  6. MYRBETRIQ [Concomitant]
     Active Substance: MIRABEGRON
  7. POTASSIUM CHLORIDE [Concomitant]
     Active Substance: POTASSIUM CHLORIDE
  8. ELIQUIS [Concomitant]
     Active Substance: APIXABAN
  9. Gas-x max strength [Concomitant]
  10. PANTOPRAZOLE SODIUM [Concomitant]
     Active Substance: PANTOPRAZOLE SODIUM
  11. IMODIUM [Concomitant]
     Active Substance: LOPERAMIDE HYDROCHLORIDE

REACTIONS (4)
  - Illness [Unknown]
  - Hepatic enzyme increased [None]
  - Incorrect dose administered [None]
  - Product use in unapproved indication [None]
